FAERS Safety Report 9625735 (Version 1)
Quarter: 2013Q4

REPORT INFORMATION
  Report Type: Spontaneous
  Country: US (occurrence: None)
  Receive Date: 20131015
  Receipt Date: 20131015
  Transmission Date: 20140711
  Serious: Yes (Hospitalization, Disabling)
  Sender: FDA-Public Use
  Company Number: None

PATIENT
  Age: 49 Year
  Sex: Female
  Weight: 74.84 kg

DRUGS (2)
  1. LEVAQUIN [Suspect]
     Indication: PROPHYLAXIS
  2. CIPRO [Suspect]
     Dates: start: 20120315

REACTIONS (11)
  - VIIth nerve paralysis [None]
  - Hypoaesthesia [None]
  - Paraesthesia [None]
  - Arthralgia [None]
  - Myalgia [None]
  - Toxicity to various agents [None]
  - Neuropathy peripheral [None]
  - Nervous system disorder [None]
  - Oedema peripheral [None]
  - Tendon disorder [None]
  - Mobility decreased [None]
